FAERS Safety Report 6342970-0 (Version None)
Quarter: 2009Q3

REPORT INFORMATION
  Report Type: 
  Country: None (occurrence: None)
  Receive Date: 20090908
  Receipt Date: 20090901
  Transmission Date: 20100115
  Serious: Yes (Other)
  Sender: FDA-Public Use
  Company Number: US-JNJFOC-20090901059

PATIENT
  Age: 84 Year
  Sex: Female
  Weight: 63.5 kg

DRUGS (9)
  1. IMODIUM A-D [Suspect]
     Route: 048
  2. IMODIUM A-D [Suspect]
     Indication: DIARRHOEA
     Route: 048
  3. SIMVASTATIN [Concomitant]
     Indication: BLOOD CHOLESTEROL INCREASED
  4. ADVAIR DISKUS 100/50 [Concomitant]
     Indication: CHRONIC OBSTRUCTIVE PULMONARY DISEASE
  5. DIOVAN [Concomitant]
     Indication: HYPERTENSION
  6. XALATAN [Concomitant]
     Indication: GLAUCOMA
  7. ALPHAGAN P [Concomitant]
     Indication: GLAUCOMA
  8. LEVOTHYROXINE [Concomitant]
     Indication: THYROID DISORDER
  9. FOSAMAX [Concomitant]
     Indication: OSTEOPOROSIS

REACTIONS (4)
  - BLINDNESS UNILATERAL [None]
  - EXPIRED DRUG ADMINISTERED [None]
  - EYE DISORDER [None]
  - OCULAR HYPERAEMIA [None]
